FAERS Safety Report 7705342-X (Version None)
Quarter: 2011Q3

REPORT INFORMATION
  Report Type: 
  Country: None (occurrence: None)
  Receive Date: 20110824
  Receipt Date: 20110810
  Transmission Date: 20111222
  Serious: Yes (Other)
  Sender: FDA-Public Use
  Company Number: GB-MYLANLABS-2011S1016714

PATIENT
  Age: 87 Year
  Sex: Male

DRUGS (3)
  1. ENTACAPONE [Concomitant]
     Route: 065
  2. TRAMADOL HCL [Suspect]
     Indication: PAIN
     Route: 048
  3. CO-BENELDOPA [Concomitant]
     Route: 065

REACTIONS (2)
  - TREMOR [None]
  - PARKINSON'S DISEASE [None]
